FAERS Safety Report 7790042-0 (Version None)
Quarter: 2011Q3

REPORT INFORMATION
  Report Type: 
  Country: None (occurrence: None)
  Receive Date: 20110930
  Receipt Date: 20101130
  Transmission Date: 20111222
  Serious: No
  Sender: FDA-Public Use
  Company Number: US-ASTRAZENECA-2010SE56746

PATIENT
  Sex: Female

DRUGS (3)
  1. ARIMIDEX [Suspect]
     Indication: BREAST CANCER
     Route: 048
     Dates: start: 20100501, end: 20101125
  2. IBUPROFEN (ADVIL) [Concomitant]
  3. CALCIUM CARBONATE [Concomitant]

REACTIONS (6)
  - COUGH [None]
  - POOR QUALITY SLEEP [None]
  - HOT FLUSH [None]
  - CARPAL TUNNEL SYNDROME [None]
  - ARTHRALGIA [None]
  - DISCOMFORT [None]
